FAERS Safety Report 19862401 (Version 1)
Quarter: 2021Q3

REPORT INFORMATION
  Report Type: Report from Study
  Country: DE (occurrence: DE)
  Receive Date: 20210921
  Receipt Date: 20210921
  Transmission Date: 20211014
  Serious: Yes (Hospitalization)
  Sender: FDA-Public Use
  Company Number: DE-ROCHE-2742152

PATIENT
  Age: 62 Year
  Sex: Female
  Weight: 56 kg

DRUGS (10)
  1. CARBOPLATIN. [Suspect]
     Active Substance: CARBOPLATIN
     Indication: MALIGNANT NEOPLASM OF UNKNOWN PRIMARY SITE
     Dosage: ON 30/NOV/2020, RECEIVED LAST DOSE OF INDUCTION CARBOPLATIN PRIOR TO SERIOUS ADVERSE EVENT ONSET
     Route: 042
     Dates: start: 20201130
  2. HYGROTON [Concomitant]
     Active Substance: CHLORTHALIDONE
     Route: 048
  3. PACLITAXEL. [Suspect]
     Active Substance: PACLITAXEL
     Indication: MALIGNANT NEOPLASM OF UNKNOWN PRIMARY SITE
     Dosage: ON 30/NOV/2020, RECEIVED LAST DOSE OF INDUCTION PACLITAXEL PRIOR TO SERIOUS ADVERSE EVENT ONSET
     Route: 042
     Dates: start: 20201130
  4. ATEZOLIZUMAB. [Suspect]
     Active Substance: ATEZOLIZUMAB
     Indication: MALIGNANT NEOPLASM OF UNKNOWN PRIMARY SITE
     Dosage: ON 22/DEC/2020, SHE STARTED AND MOST RECENT DOSE OF ATEZOLIZUMAB (1200 MG).
     Route: 042
     Dates: start: 20201222
  5. RAMIPRIL. [Concomitant]
     Active Substance: RAMIPRIL
     Route: 048
  6. METAMIZOL [Concomitant]
     Active Substance: METAMIZOLE SODIUM
     Indication: PAIN
     Route: 048
  7. CARBOPLATIN. [Suspect]
     Active Substance: CARBOPLATIN
     Dosage: ON 22/DEC/2020, RECEIVED LAST DOSE OF TREATMENT DRUG CARBOPLATIN PRIOR TO SERIOUS ADVERSE EVENT ONSE
     Route: 042
     Dates: start: 20201222
  8. GEMCITABINE. [Suspect]
     Active Substance: GEMCITABINE
     Indication: MALIGNANT NEOPLASM OF UNKNOWN PRIMARY SITE
     Route: 042
  9. METOPROLOL. [Concomitant]
     Active Substance: METOPROLOL
     Route: 048
  10. CISPLATIN. [Suspect]
     Active Substance: CISPLATIN
     Indication: MALIGNANT NEOPLASM OF UNKNOWN PRIMARY SITE
     Dosage: 60?75 MG/M^2
     Route: 042

REACTIONS (1)
  - General physical health deterioration [Recovered/Resolved]

NARRATIVE: CASE EVENT DATE: 20201228
